FAERS Safety Report 4944742-8 (Version None)
Quarter: 2006Q1

REPORT INFORMATION
  Report Type: 
  Country: None (occurrence: None)
  Receive Date: 20060113
  Receipt Date: 20050524
  Transmission Date: 20060701
  Serious: Yes (Other)
  Sender: FDA-Public Use
  Company Number: HQWYE412423JUL04

PATIENT
  Age: 72 Year
  Sex: Female
  Weight: 104.42 kg

DRUGS (9)
  1. PREMPRO [Suspect]
  2. ESTROGEN NOS (ESTROGEN NOS, ) [Suspect]
  3. MEDROXYPROGESTERONE [Suspect]
  4. PREMARIN [Suspect]
  5. PROVERA [Suspect]
  6. SYNTHROID [Concomitant]
  7. PRAVACHOL [Concomitant]
  8. ZOCOR [Concomitant]
  9. LIPITOR [Concomitant]

REACTIONS (1)
  - BREAST CANCER [None]
